FAERS Safety Report 6258684-1 (Version None)
Quarter: 2009Q3

REPORT INFORMATION
  Report Type: 
  Country: None (occurrence: None)
  Receive Date: 20090707
  Receipt Date: 20090626
  Transmission Date: 20100115
  Serious: Yes (Other)
  Sender: FDA-Public Use
  Company Number: US-ABBOTT-09P-163-0582052-00

PATIENT
  Sex: Female

DRUGS (2)
  1. DEPAKOTE ER [Suspect]
     Indication: DRUG USE FOR UNKNOWN INDICATION
     Route: 048
     Dates: start: 20071108
  2. DEPAKOTE ER [Suspect]
     Route: 051
     Dates: start: 20090616

REACTIONS (4)
  - DRUG DISPENSING ERROR [None]
  - DYSPHAGIA [None]
  - FAILURE TO THRIVE [None]
  - HYPOPHAGIA [None]
